FAERS Safety Report 5129627-9 (Version None)
Quarter: 2006Q4

REPORT INFORMATION
  Report Type: 
  Country: None (occurrence: None)
  Receive Date: 20061018
  Receipt Date: 20060915
  Transmission Date: 20070319
  Serious: Yes (Hospitalization)
  Sender: FDA-Public Use
  Company Number: US-ROCHE-463336

PATIENT
  Age: 69 Year
  Sex: Female
  Weight: 49 kg

DRUGS (15)
  1. CAPECITABINE [Suspect]
     Indication: PANCREATIC CARCINOMA
     Route: 065
     Dates: start: 20060802
  2. ERLOTINIB [Suspect]
     Indication: PANCREATIC CARCINOMA
     Route: 048
     Dates: start: 20060802, end: 20060913
  3. GENERIC UNKNOWN [Concomitant]
     Dosage: REPORTED AS: RADIOTHERAPY
  4. PANCREASE [Concomitant]
  5. PROTONIX [Concomitant]
  6. ZOLOFT [Concomitant]
  7. KLONOPIN [Concomitant]
  8. BENADRYL [Concomitant]
  9. DILAUDID [Concomitant]
  10. CIPRO [Concomitant]
     Dates: start: 20060901, end: 20060906
  11. BONIVA [Concomitant]
  12. EPOGEN [Concomitant]
  13. PHENERGAN [Concomitant]
  14. ZOFRAN [Concomitant]
  15. COMPAZINE [Concomitant]

REACTIONS (3)
  - FISTULA [None]
  - PAIN [None]
  - PYREXIA [None]
